FAERS Safety Report 25681073 (Version 2)
Quarter: 2025Q3

REPORT INFORMATION
  Report Type: Spontaneous
  Country: CN (occurrence: CN)
  Receive Date: 20250814
  Receipt Date: 20250820
  Transmission Date: 20251020
  Serious: Yes (Other)
  Sender: BAYER HEALTHCARE PHARMACEUTICALS INC.
  Company Number: CN-BAYER-2025A107540

PATIENT
  Age: 55 Year
  Sex: Male

DRUGS (4)
  1. AVELOX [Suspect]
     Active Substance: MOXIFLOXACIN HYDROCHLORIDE
     Indication: Anti-infective therapy
  2. SOMATOSTATIN [Concomitant]
     Active Substance: SOMATOSTATIN
     Indication: Symptomatic treatment
  3. CILASTATIN SODIUM\IMIPENEM [Concomitant]
     Active Substance: CILASTATIN SODIUM\IMIPENEM
     Indication: Anti-infective therapy
  4. ATORVASTATIN [Concomitant]
     Active Substance: ATORVASTATIN
     Indication: Lipids abnormal

REACTIONS (9)
  - Rhabdomyolysis [None]
  - Oedema [Recovering/Resolving]
  - Oliguria [Recovering/Resolving]
  - Blood creatinine increased [Recovering/Resolving]
  - Product use in unapproved indication [None]
  - Product prescribing issue [None]
  - Labelled drug-disease interaction issue [None]
  - Contraindicated product administered [None]
  - Contraindicated product prescribed [None]
